FAERS Safety Report 10240238 (Version 1)
Quarter: 2014Q2

REPORT INFORMATION
  Report Type: Spontaneous
  Country: TN (occurrence: TN)
  Receive Date: 20140617
  Receipt Date: 20140617
  Transmission Date: 20141212
  Serious: Yes (Other)
  Sender: FDA-Public Use
  Company Number: PHHY2014TN070705

PATIENT
  Age: 50 Year
  Sex: Female

DRUGS (4)
  1. VALPROIC ACID [Suspect]
     Indication: CONVULSION
  2. CELECOXIB [Suspect]
     Dosage: UNK
     Dates: start: 201306
  3. LEVETIRACETAM [Suspect]
     Indication: CONVULSION
  4. PHENOBARBITAL [Suspect]

REACTIONS (8)
  - Drug reaction with eosinophilia and systemic symptoms [Unknown]
  - Generalised erythema [Recovered/Resolved]
  - Lymphadenopathy [Recovered/Resolved]
  - Pyrexia [Recovered/Resolved]
  - Aspartate aminotransferase increased [Recovered/Resolved]
  - Alanine aminotransferase increased [Recovered/Resolved]
  - Cardio-respiratory arrest [Recovered/Resolved]
  - Status epilepticus [Recovered/Resolved]
